FAERS Safety Report 6786755-X (Version None)
Quarter: 2010Q2

REPORT INFORMATION
  Report Type: 
  Country: None (occurrence: None)
  Receive Date: 20100623
  Receipt Date: 20100610
  Transmission Date: 20101027
  Serious: Yes (Other)
  Sender: FDA-Public Use
  Company Number: SE-ELI_LILLY_AND_COMPANY-SE201006002733

PATIENT
  Age: 38 Year
  Sex: Male

DRUGS (4)
  1. ZYPREXA [Suspect]
     Indication: PSYCHOTIC DISORDER
     Dosage: 5 MG, DAILY (1/D)
     Route: 048
     Dates: start: 20090618
  2. LITHIONIT [Concomitant]
  3. LYRICA [Concomitant]
  4. ZOPIKLON [Concomitant]

REACTIONS (2)
  - OVERWEIGHT [None]
  - VENOUS THROMBOSIS LIMB [None]
